FAERS Safety Report 15160715 (Version 1)
Quarter: 2018Q3

REPORT INFORMATION
  Report Type: Report from Study
  Country: IT (occurrence: IT)
  Receive Date: 20180718
  Receipt Date: 20180718
  Transmission Date: 20181010
  Serious: Yes (Hospitalization, Other)
  Sender: FDA-Public Use
  Company Number: IT-MYLANLABS-2018M1053836

PATIENT
  Age: 52 Year
  Sex: Female

DRUGS (4)
  1. BRUFEN 600 MG COMPRESSE RIVESTITE [Suspect]
     Active Substance: IBUPROFEN
     Indication: PRODUCT USED FOR UNKNOWN INDICATION
     Dosage: UNK
  2. BRINTELLIX [Suspect]
     Active Substance: VORTIOXETINE HYDROBROMIDE
     Indication: PRODUCT USED FOR UNKNOWN INDICATION
     Dosage: UNK
  3. LEXOTAN [Suspect]
     Active Substance: BROMAZEPAM
     Indication: PRODUCT USED FOR UNKNOWN INDICATION
     Dosage: UNK
  4. ZERINOL /00465901/ [Suspect]
     Active Substance: ACETAMINOPHEN\CHLORPHENIRAMINE\FEPRAZONE\PHENYLPROPANOLAMINE
     Indication: PRODUCT USED FOR UNKNOWN INDICATION
     Dosage: UNK

REACTIONS (2)
  - Drug abuse [Recovering/Resolving]
  - No adverse event [Unknown]

NARRATIVE: CASE EVENT DATE: 20180310
